FAERS Safety Report 6379168-6 (Version None)
Quarter: 2009Q3

REPORT INFORMATION
  Report Type: 
  Country: None (occurrence: None)
  Receive Date: 20090921
  Receipt Date: 20090914
  Transmission Date: 20100115
  Serious: Yes (Death)
  Sender: FDA-Public Use
  Company Number: AE-2009-188

PATIENT
  Age: 25 Year
  Sex: Male

DRUGS (3)
  1. METOPROLOL [Suspect]
     Dosage: ORAL
     Route: 048
  2. LOSARTAN [Suspect]
     Dosage: ORAL
     Route: 048
  3. CARDIAC GLYCOSIDE [Suspect]
     Dosage: ORAL
     Route: 048

REACTIONS (1)
  - COMPLETED SUICIDE [None]
